FAERS Safety Report 4696529-1 (Version None)
Quarter: 2005Q2

REPORT INFORMATION
  Report Type: 
  Country: None (occurrence: None)
  Receive Date: 20050620
  Receipt Date: 20050603
  Transmission Date: 20051028
  Serious: Yes (Hospitalization)
  Sender: FDA-Public Use
  Company Number: 2005-078

PATIENT
  Sex: Male
  Weight: 78.4723 kg

DRUGS (6)
  1. TRIAMTERENE AND HYDROCHLOROTHIAZIDE [Suspect]
     Indication: HYPERTENSION
     Dates: start: 20040101
  2. DILTIAZEM [Concomitant]
  3. CATAPRES-TTS-2 [Concomitant]
  4. VITAMIN CAP [Concomitant]
  5. VITAMIN C, D, E [Concomitant]
  6. CALCIUM CARBONATE [Concomitant]

REACTIONS (2)
  - CONDITION AGGRAVATED [None]
  - INFLAMMATORY BOWEL DISEASE [None]
